FAERS Safety Report 19186760 (Version 1)
Quarter: 2021Q2

REPORT INFORMATION
  Report Type: Spontaneous
  Country: PL (occurrence: PL)
  Receive Date: 20210428
  Receipt Date: 20210428
  Transmission Date: 20210717
  Serious: Yes (Hospitalization, Other)
  Sender: FDA-Public Use
  Company Number: PL-TEVA-2021-PL-1904948

PATIENT
  Age: 74 Year
  Sex: Female

DRUGS (11)
  1. ATORVASTATIN [Suspect]
     Active Substance: ATORVASTATIN
     Indication: PRODUCT USED FOR UNKNOWN INDICATION
     Dosage: 40 MILLIGRAM DAILY;
     Route: 065
  2. APIXABAN [Concomitant]
     Active Substance: APIXABAN
  3. PERINDOPRIL [Concomitant]
     Active Substance: PERINDOPRIL
  4. EPLERENONE. [Concomitant]
     Active Substance: EPLERENONE
  5. FUROSEMIDE. [Concomitant]
     Active Substance: FUROSEMIDE
  6. ACETYLSALICYLIC ACID [Suspect]
     Active Substance: ASPIRIN
     Indication: PRODUCT USED FOR UNKNOWN INDICATION
     Dosage: 75 MILLIGRAM DAILY;
     Route: 065
  7. SACUBITRIL;VALSARTAN [Suspect]
     Active Substance: SACUBITRIL\VALSARTAN
     Indication: PRODUCT USED FOR UNKNOWN INDICATION
     Dosage: 1 DOSAGE FORMS DAILY;
     Route: 065
  8. METOPROLOL. [Suspect]
     Active Substance: METOPROLOL
     Dosage: 50 MILLIGRAM DAILY;
     Route: 065
  9. METOPROLOL. [Suspect]
     Active Substance: METOPROLOL
     Indication: PRODUCT USED FOR UNKNOWN INDICATION
     Dosage: 150 MILLIGRAM DAILY;
     Route: 065
  10. METOPROLOL. [Suspect]
     Active Substance: METOPROLOL
     Dosage: 200 MILLIGRAM DAILY;
     Route: 065
  11. ROSUVASTATIN. [Suspect]
     Active Substance: ROSUVASTATIN
     Indication: PRODUCT USED FOR UNKNOWN INDICATION
     Dosage: 30 MILLIGRAM DAILY;
     Route: 065

REACTIONS (14)
  - Asthenia [Unknown]
  - Degenerative aortic valve disease [Unknown]
  - Ejection fraction decreased [Unknown]
  - Heart rate irregular [Unknown]
  - Exercise tolerance decreased [Unknown]
  - Heart rate increased [Unknown]
  - Atrial fibrillation [Unknown]
  - Ventricular extrasystoles [Unknown]
  - Blood pressure decreased [Unknown]
  - Cardiac failure [Unknown]
  - Condition aggravated [Unknown]
  - Supraventricular extrasystoles [Unknown]
  - COVID-19 [Unknown]
  - Pyrexia [Unknown]

NARRATIVE: CASE EVENT DATE: 202010
